FAERS Safety Report 8251745-7 (Version None)
Quarter: 2012Q2

REPORT INFORMATION
  Report Type: 
  Country: None (occurrence: None)
  Receive Date: 20120402
  Receipt Date: 20120327
  Transmission Date: 20120825
  Serious: Yes (Hospitalization, Other)
  Sender: FDA-Public Use
  Company Number: FR-ABBOTT-12P-056-0904795-00

PATIENT
  Sex: Male
  Weight: 78 kg

DRUGS (6)
  1. PIROXICAM [Suspect]
     Indication: ANKYLOSING SPONDYLITIS
     Dosage: 20 MG DAILY
     Route: 048
  2. ACETAMINOPHEN AND TRAMADOL HCL [Concomitant]
     Indication: ANKYLOSING SPONDYLITIS
  3. HUMIRA [Suspect]
     Indication: ANKYLOSING SPONDYLITIS
  4. HUMIRA [Suspect]
     Indication: PSORIASIS
  5. HUMIRA [Suspect]
     Indication: PSORIATIC ARTHROPATHY
     Dates: start: 20090601, end: 20120101
  6. ARAVA [Suspect]
     Indication: ANKYLOSING SPONDYLITIS
     Dosage: 20MG DAILY
     Dates: start: 20090801, end: 20120101

REACTIONS (1)
  - PLEURISY [None]
